FAERS Safety Report 5413137-5 (Version None)
Quarter: 2007Q3

REPORT INFORMATION
  Report Type: 
  Country: None (occurrence: None)
  Receive Date: 20070810
  Receipt Date: 20070730
  Transmission Date: 20080115
  Serious: Yes (Other)
  Sender: FDA-Public Use
  Company Number: 2007AP000824

PATIENT
  Age: 65 Year
  Sex: Female

DRUGS (6)
  1. CITALOPRAM HYDROBROMIDE [Suspect]
     Indication: DEPRESSION
  2. FENTANYL [Suspect]
     Indication: BACK PAIN
     Dosage: 25 UG; QH; OTHER
     Route: 050
  3. RABEPRAZOLE SODIUM [Concomitant]
  4. TOLTERODINE TARTRATE [Concomitant]
  5. HYDROCODONE BITARTRATE [Concomitant]
  6. ANTIINFLAMMATORY/ANTIRHEUMATIC NON-STEROIDS [Concomitant]

REACTIONS (10)
  - AGGRESSION [None]
  - AGITATION [None]
  - CONFUSIONAL STATE [None]
  - DRUG INTERACTION [None]
  - GAIT DISTURBANCE [None]
  - HYPERREFLEXIA [None]
  - MYOCLONUS [None]
  - SEROTONIN SYNDROME [None]
  - TACHYCARDIA [None]
  - TREMOR [None]
